FAERS Safety Report 21965514 (Version 2)
Quarter: 2023Q1

REPORT INFORMATION
  Report Type: Spontaneous
  Country: IT (occurrence: IT)
  Receive Date: 20230208
  Receipt Date: 20230217
  Transmission Date: 20230418
  Serious: Yes (Hospitalization, Other)
  Sender: FDA-Public Use
  Company Number: IT-CELLTRION INC.-2023IT002557

PATIENT

DRUGS (7)
  1. RITUXIMAB [Suspect]
     Active Substance: RITUXIMAB
     Indication: Granulomatosis with polyangiitis
     Dosage: 500 MILLIGRAM, EVERY 6 MONTHS
     Dates: end: 202112
  2. PREDNISONE [Suspect]
     Active Substance: PREDNISONE
     Indication: Granulomatosis with polyangiitis
     Dosage: 5 MILLIGRAM, QD/ 5 MG, 24 HOUR
  3. SOTROVIMAB [Suspect]
     Active Substance: SOTROVIMAB
     Indication: SARS-CoV-2 viraemia
     Dosage: 500 MILLIGRAM
     Route: 042
  4. REMDESIVIR [Suspect]
     Active Substance: REMDESIVIR
     Indication: SARS-CoV-2 viraemia
     Dosage: 200 MILLIGRAM
     Route: 042
  5. REMDESIVIR [Suspect]
     Active Substance: REMDESIVIR
     Dosage: 100 MILLIGRAM
     Route: 042
  6. RITONAVIR [Suspect]
     Active Substance: RITONAVIR
     Indication: SARS-CoV-2 viraemia
     Dosage: 100 MILLIGRAM, BID
     Route: 048
  7. NIRMATRELVIR [Suspect]
     Active Substance: NIRMATRELVIR
     Indication: SARS-CoV-2 viraemia
     Dosage: 300 MILLIGRAM, BID
     Route: 048

REACTIONS (4)
  - Immunodeficiency [Unknown]
  - COVID-19 [Recovered/Resolved]
  - COVID-19 pneumonia [Recovered/Resolved]
  - SARS-CoV-2 viraemia [Recovered/Resolved]

NARRATIVE: CASE EVENT DATE: 20220101
